FAERS Safety Report 4461346-4 (Version None)
Quarter: 2004Q3

REPORT INFORMATION
  Report Type: 
  Country: None (occurrence: None)
  Receive Date: 20040928
  Receipt Date: 20040924
  Transmission Date: 20050211
  Serious: Yes (Life-Threatening, Other)
  Sender: FDA-Public Use
  Company Number: PR-BRISTOL-MYERS SQUIBB COMPANY-12711370

PATIENT
  Age: 44 Year
  Sex: Male
  Weight: 62 kg

DRUGS (5)
  1. STAVUDINE XR [Suspect]
     Dosage: DOSE EITHER 75 OR 100 MG
     Route: 048
     Dates: start: 20040421
  2. KALETRA [Suspect]
     Route: 048
     Dates: start: 20040421
  3. EMTRICITABINE [Suspect]
     Route: 048
     Dates: start: 20040421
  4. SEPTRA DS [Concomitant]
  5. MULTI-VITAMIN [Concomitant]

REACTIONS (10)
  - ANAEMIA [None]
  - BLOOD ALKALINE PHOSPHATASE INCREASED [None]
  - CRYSTALLURIA [None]
  - GAMMA-GLUTAMYLTRANSFERASE INCREASED [None]
  - HAEMATURIA [None]
  - HYPERBILIRUBINAEMIA [None]
  - NITRITE URINE PRESENT [None]
  - PLATELET COUNT DECREASED [None]
  - PROTEINURIA [None]
  - WHITE BLOOD CELLS URINE POSITIVE [None]
